FAERS Safety Report 6822131-9 (Version None)
Quarter: 2010Q3

REPORT INFORMATION
  Report Type: 
  Country: None (occurrence: None)
  Receive Date: 20100706
  Receipt Date: 20100623
  Transmission Date: 20110219
  Serious: Yes (Death)
  Sender: FDA-Public Use
  Company Number: 1000011611

PATIENT
  Age: 41 Year
  Sex: Female
  Weight: 64 kg

DRUGS (2)
  1. CITALOPRAM HYDROBROMIDE [Suspect]
  2. LAMOTRIGINE [Suspect]

REACTIONS (1)
  - DROWNING [None]
